FAERS Safety Report 6992389-4 (Version None)
Quarter: 2010Q3

REPORT INFORMATION
  Report Type: 
  Country: None (occurrence: None)
  Receive Date: 20100917
  Receipt Date: 20100908
  Transmission Date: 20110219
  Serious: Yes (Other)
  Sender: FDA-Public Use
  Company Number: US-PFIZER INC-2010114427

PATIENT
  Sex: Male

DRUGS (3)
  1. VIAGRA [Suspect]
     Indication: ERECTILE DYSFUNCTION
     Dosage: 25 MG, AS NEEDED
     Route: 048
     Dates: start: 20100901
  2. VIAGRA [Suspect]
     Dosage: 100 MG, SINGLE
     Dates: start: 20100901
  3. VIAGRA [Suspect]
     Dosage: 100 MG, SINGLE
     Dates: start: 20100907

REACTIONS (1)
  - DRUG EFFECT PROLONGED [None]
